FAERS Safety Report 5958232-7 (Version None)
Quarter: 2008Q4

REPORT INFORMATION
  Report Type: 
  Country: None (occurrence: None)
  Receive Date: 20081117
  Receipt Date: 20081117
  Transmission Date: 20090506
  Serious: No
  Sender: FDA-Public Use
  Company Number: None

PATIENT
  Age: 68 Year
  Sex: Female
  Weight: 105.2345 kg

DRUGS (4)
  1. JANUVIA [Suspect]
     Indication: FATIGUE
     Dosage: ONE PILL EVERY DAY PO
     Route: 048
     Dates: start: 20081017, end: 20081114
  2. JANUVIA [Suspect]
     Indication: HEADACHE
     Dosage: ONE PILL EVERY DAY PO
     Route: 048
     Dates: start: 20081017, end: 20081114
  3. JANUVIA [Suspect]
     Indication: NAUSEA
     Dosage: ONE PILL EVERY DAY PO
     Route: 048
     Dates: start: 20081017, end: 20081114
  4. JANUVIA [Suspect]
     Indication: OEDEMA PERIPHERAL
     Dosage: ONE PILL EVERY DAY PO
     Route: 048
     Dates: start: 20081017, end: 20081114

REACTIONS (5)
  - FATIGUE [None]
  - HEADACHE [None]
  - NAUSEA [None]
  - RHINORRHOEA [None]
  - SINUS DISORDER [None]
